FAERS Safety Report 18901183 (Version 1)
Quarter: 2021Q1

REPORT INFORMATION
  Report Type: Spontaneous
  Country: CA (occurrence: CA)
  Receive Date: 20210217
  Receipt Date: 20210217
  Transmission Date: 20210420
  Serious: Yes (Death)
  Sender: FDA-Public Use
  Company Number: CA-ROCHE-2769280

PATIENT
  Age: 2 Year
  Sex: Female
  Weight: 15 kg

DRUGS (81)
  1. SIROLIMUS. [Suspect]
     Active Substance: SIROLIMUS
     Indication: PRODUCT USED FOR UNKNOWN INDICATION
     Route: 048
  2. SOLIRIS [Concomitant]
     Active Substance: ECULIZUMAB
     Dosage: SOLUTION?INTRAVENOUS
     Route: 042
  3. ACETAMINOPHEN. [Concomitant]
     Active Substance: ACETAMINOPHEN
  4. POLYETHYLENE GLYCOL [Concomitant]
     Active Substance: POLYETHYLENE GLYCOLS
  5. PRAZOSIN. [Concomitant]
     Active Substance: PRAZOSIN
  6. CEFTAZIDIME. [Concomitant]
     Active Substance: CEFTAZIDIME
  7. CYCLOSPORINE. [Concomitant]
     Active Substance: CYCLOSPORINE
  8. FENTANYL. [Concomitant]
     Active Substance: FENTANYL
  9. HYDROMORPHONE [Concomitant]
     Active Substance: HYDROMORPHONE
  10. SPIRONOLACTONE. [Concomitant]
     Active Substance: SPIRONOLACTONE
  11. VORICONAZOLE. [Concomitant]
     Active Substance: VORICONAZOLE
  12. AMPHOTERICIN B. [Concomitant]
     Active Substance: AMPHOTERICIN B
  13. METHYLPREDNISOLONE. [Concomitant]
     Active Substance: METHYLPREDNISOLONE
  14. NALOXONE [Concomitant]
     Active Substance: NALOXONE
  15. CIPROFLOXACIN. [Concomitant]
     Active Substance: CIPROFLOXACIN
  16. HEPARIN CALCIUM [Concomitant]
     Active Substance: HEPARIN CALCIUM
  17. RANITIDINE. [Concomitant]
     Active Substance: RANITIDINE
  18. AMLODIPINE [Concomitant]
     Active Substance: AMLODIPINE BESYLATE
  19. NIFEDIPINE. [Concomitant]
     Active Substance: NIFEDIPINE
  20. ONDANSETRON [Concomitant]
     Active Substance: ONDANSETRON
  21. CETIRIZINE [Concomitant]
     Active Substance: CETIRIZINE HYDROCHLORIDE
  22. HYDROXYZINE [Concomitant]
     Active Substance: HYDROXYZINE HYDROCHLORIDE
  23. VALGANCICLOVIR. [Suspect]
     Active Substance: VALGANCICLOVIR
     Dosage: 5.0 DAYS
     Route: 048
  24. TOBRAMYCIN. [Concomitant]
     Active Substance: TOBRAMYCIN
  25. AMOXICILLIN. [Concomitant]
     Active Substance: AMOXICILLIN
  26. LABETALOL [Concomitant]
     Active Substance: LABETALOL\LABETALOL HYDROCHLORIDE
  27. MELATONIN [Concomitant]
     Active Substance: MELATONIN
  28. MYCAMINE [Concomitant]
     Active Substance: MICAFUNGIN SODIUM
     Route: 042
  29. OLANZAPINE. [Concomitant]
     Active Substance: OLANZAPINE
  30. GANCICLOVIR. [Concomitant]
     Active Substance: GANCICLOVIR
  31. RITUXIMAB. [Concomitant]
     Active Substance: RITUXIMAB
  32. SALBUTAMOL [Concomitant]
     Active Substance: ALBUTEROL
  33. SODIUM [Concomitant]
     Active Substance: SODIUM
  34. TACROLIMUS. [Concomitant]
     Active Substance: TACROLIMUS
  35. ACETYLCYSTEINE. [Concomitant]
     Active Substance: ACETYLCYSTEINE
     Dosage: SOLUTION?INHALATION
  36. ACYCLOVIR. [Concomitant]
     Active Substance: ACYCLOVIR
  37. MIDAZOLAM. [Concomitant]
     Active Substance: MIDAZOLAM
  38. CELLCEPT [Concomitant]
     Active Substance: MYCOPHENOLATE MOFETIL\MYCOPHENOLATE MOFETIL HYDROCHLORIDE
     Route: 048
  39. CYCLOPHOSPHAMIDE. [Concomitant]
     Active Substance: CYCLOPHOSPHAMIDE
  40. DIMENHYDRINATE. [Concomitant]
     Active Substance: DIMENHYDRINATE
  41. FUROSEMIDE. [Concomitant]
     Active Substance: FUROSEMIDE
  42. GABAPENTIN. [Concomitant]
     Active Substance: GABAPENTIN
  43. SIROLIMUS. [Suspect]
     Active Substance: SIROLIMUS
     Route: 048
  44. LEVETIRACETAM. [Concomitant]
     Active Substance: LEVETIRACETAM
  45. CIDOFOVIR. [Concomitant]
     Active Substance: CIDOFOVIR
     Route: 042
  46. MEROPENEM. [Concomitant]
     Active Substance: MEROPENEM
     Route: 042
  47. MORPHINE [Concomitant]
     Active Substance: MORPHINE
  48. PANTOPRAZOLE [Concomitant]
     Active Substance: PANTOPRAZOLE
  49. PROBENECID. [Concomitant]
     Active Substance: PROBENECID
  50. CLONIDINE. [Concomitant]
     Active Substance: CLONIDINE
  51. FAMOTIDINE. [Concomitant]
     Active Substance: FAMOTIDINE
  52. FLUCONAZOLE. [Concomitant]
     Active Substance: FLUCONAZOLE
  53. FLUDARABINE [Concomitant]
     Active Substance: FLUDARABINE PHOSPHATE
  54. HYDROCORTISONE. [Concomitant]
     Active Substance: HYDROCORTISONE
  55. SIROLIMUS. [Suspect]
     Active Substance: SIROLIMUS
     Route: 048
  56. TRANEXAMIC ACID. [Concomitant]
     Active Substance: TRANEXAMIC ACID
  57. ALEMTUZUMAB [Concomitant]
     Active Substance: ALEMTUZUMAB
     Dosage: SOLUTION INTRAVENOUS
     Route: 042
  58. AQUAPHORIL [Concomitant]
     Active Substance: XIPAMIDE
     Route: 061
  59. MAGNESIUM [Concomitant]
     Active Substance: MAGNESIUM
  60. MESNA. [Concomitant]
     Active Substance: MESNA
  61. METOCLOPRAMIDE. [Concomitant]
     Active Substance: METOCLOPRAMIDE
  62. PENTAMIDINE ISETHIONATE. [Concomitant]
     Active Substance: PENTAMIDINE ISETHIONATE
  63. BUSULFAN. [Concomitant]
     Active Substance: BUSULFAN
  64. CALCIUM [Concomitant]
     Active Substance: CALCIUM
  65. VITAMIN D3 [Concomitant]
     Active Substance: CHOLECALCIFEROL
  66. DEXMEDETOMIDINE. [Concomitant]
     Active Substance: DEXMEDETOMIDINE
  67. DIPHENHYDRAMINE. [Concomitant]
     Active Substance: DIPHENHYDRAMINE
  68. EPINEPHRINE. [Concomitant]
     Active Substance: EPINEPHRINE
  69. FAMCICLOVIR. [Concomitant]
     Active Substance: FAMCICLOVIR
  70. FOSCARNET SODIUM. [Concomitant]
     Active Substance: FOSCARNET SODIUM
  71. KETAMINE [Concomitant]
     Active Substance: KETAMINE
  72. SIROLIMUS. [Suspect]
     Active Substance: SIROLIMUS
     Route: 048
  73. VALGANCICLOVIR. [Suspect]
     Active Substance: VALGANCICLOVIR
     Indication: CYTOMEGALOVIRUS INFECTION
     Route: 048
  74. SCOPOLAMINE [Concomitant]
     Active Substance: SCOPOLAMINE
  75. URSODEOXYCHOLIC ACID [Concomitant]
     Active Substance: URSODIOL
  76. VANCOMYCIN [Concomitant]
     Active Substance: VANCOMYCIN
  77. ALTEPLASE. [Concomitant]
     Active Substance: ALTEPLASE
     Dosage: LIQUID?INTRAVENOUS
  78. LORAZEPAM. [Concomitant]
     Active Substance: LORAZEPAM
  79. METRONIDAZOLE. [Concomitant]
     Active Substance: METRONIDAZOLE
  80. POTASSIUM [Concomitant]
     Active Substance: POTASSIUM
  81. CICLESONIDE [Concomitant]
     Active Substance: CICLESONIDE

REACTIONS (1)
  - Aplastic anaemia [Fatal]
